FAERS Safety Report 22272066 (Version 1)
Quarter: 2023Q2

REPORT INFORMATION
  Report Type: Spontaneous
  Country: FR (occurrence: FR)
  Receive Date: 20230502
  Receipt Date: 20230502
  Transmission Date: 20230722
  Serious: Yes (Other)
  Sender: FDA-Public Use
  Company Number: None

PATIENT
  Age: 74 Year
  Sex: Female

DRUGS (14)
  1. HEPARIN CALCIUM [Suspect]
     Active Substance: HEPARIN CALCIUM
     Indication: Anticoagulant therapy
     Dosage: 12500/0.5ML 0.3ML 3X/D 0.90ML QD
     Route: 058
     Dates: start: 20170415, end: 20170510
  2. FLUCONAZOLE [Suspect]
     Active Substance: FLUCONAZOLE
     Indication: Oral fungal infection
     Dosage: 200MG QD
     Route: 048
     Dates: start: 20170511, end: 20170512
  3. LOVENOX [Suspect]
     Active Substance: ENOXAPARIN SODIUM
     Indication: Anticoagulant therapy
     Dosage: ANTI-XA/0.6 ML IN PRE-FILLED SYRINGE 2/D
     Route: 058
     Dates: start: 20170511, end: 20170512
  4. ALPRAZOLAM [Suspect]
     Active Substance: ALPRAZOLAM
     Dosage: 1 SINGLE DOSE OF 1/2 CP
     Route: 048
     Dates: start: 20170511, end: 20170511
  5. BISOPROLOL FUMARATE [Suspect]
     Active Substance: BISOPROLOL FUMARATE
     Dosage: 1DF QD
  6. CORDARONE [Suspect]
     Active Substance: AMIODARONE HYDROCHLORIDE
     Dosage: 1 DF, QD
  7. FUROSEMIDE [Suspect]
     Active Substance: FUROSEMIDE
     Dosage: UNK
  8. IMOVANE [Suspect]
     Active Substance: ZOPICLONE
     Dosage: 1 DF, QD
  9. KARDEGIC [Suspect]
     Active Substance: ASPIRIN DL-LYSINE
     Dosage: UNK UNK, QD
  10. PANTOPRAZOLE SODIUM [Suspect]
     Active Substance: PANTOPRAZOLE SODIUM
     Dosage: UNK UNK, QD
  11. MIANSERIN HYDROCHLORIDE [Suspect]
     Active Substance: MIANSERIN HYDROCHLORIDE
     Dosage: UNK, BID
     Dates: start: 20170511
  12. RAMIPRIL [Suspect]
     Active Substance: RAMIPRIL
     Dosage: UNK, QD
     Dates: start: 20170511
  13. PAROXETINE HYDROCHLORIDE [Suspect]
     Active Substance: PAROXETINE HYDROCHLORIDE
     Dosage: UNK, QD
  14. ATORVASTATIN [Suspect]
     Active Substance: ATORVASTATIN
     Dosage: QD

REACTIONS (5)
  - Allergy test positive [Recovered/Resolved]
  - Pruritus [Recovered/Resolved]
  - Skin exfoliation [Recovered/Resolved]
  - Rash maculo-papular [Recovered/Resolved]
  - Injection site reaction [Recovered/Resolved]

NARRATIVE: CASE EVENT DATE: 20170511
